FAERS Safety Report 5144226-0 (Version None)
Quarter: 2006Q4

REPORT INFORMATION
  Report Type: 
  Country: None (occurrence: None)
  Receive Date: 20061106
  Receipt Date: 20061025
  Transmission Date: 20070319
  Serious: Yes (Other)
  Sender: FDA-Public Use
  Company Number: GB-ROCHE-468694

PATIENT
  Age: 42 Year
  Sex: Male

DRUGS (16)
  1. GANCICLOVIR [Suspect]
     Dosage: DOSE = 44MG/KG/DAY
     Route: 048
  2. GANCICLOVIR SODIUM [Suspect]
     Dosage: TAKEN FOR 4 WEEKS
     Route: 042
  3. VALGANCICLOVIR HCL [Suspect]
     Dosage: DOSE = 15 MG/KG/DAY
     Route: 048
  4. VALGANCICLOVIR HCL [Suspect]
     Route: 048
  5. ACYCLOVIR [Concomitant]
  6. TACROLIMUS [Concomitant]
  7. AZATHIOPRINE [Concomitant]
  8. PREDNISOLONE [Concomitant]
  9. CO-TRIMOXAZOLE [Concomitant]
  10. TAMSULOSIN HCL [Concomitant]
  11. LANSOPRAZOLE [Concomitant]
  12. ZOPICLONE [Concomitant]
  13. ONDANSETRON [Concomitant]
  14. DIHYDROCODEINE BITARTRATE INJ [Concomitant]
  15. ALENDRONATE SODIUM [Concomitant]
  16. FOSCARNET [Concomitant]

REACTIONS (4)
  - BONE MARROW FAILURE [None]
  - INFLUENZA LIKE ILLNESS [None]
  - NEUTROPHIL MORPHOLOGY ABNORMAL [None]
  - RESPIRATORY DISORDER [None]
